FAERS Safety Report 15518460 (Version 1)
Quarter: 2018Q4

REPORT INFORMATION
  Report Type: Report from Study
  Country: US (occurrence: US)
  Receive Date: 20181017
  Receipt Date: 20181017
  Transmission Date: 20190205
  Serious: Yes (Death)
  Sender: FDA-Public Use
  Company Number: US-EXELIXIS-CABO-18012116

PATIENT
  Age: 61 Year
  Sex: Male

DRUGS (18)
  1. CABOMETYX [Suspect]
     Active Substance: CABOZANTINIB S-MALATE
     Indication: PANCREATIC CARCINOMA
  2. LOMOTIL [Concomitant]
     Active Substance: ATROPINE SULFATE\DIPHENOXYLATE HYDROCHLORIDE
  3. LIDOCAINE/PRILOCAINE [Concomitant]
     Active Substance: LIDOCAINE\PRILOCAINE
  4. ZYPREXA [Concomitant]
     Active Substance: OLANZAPINE
  5. CALCIUM CARBONATE. [Concomitant]
     Active Substance: CALCIUM CARBONATE
  6. LUNESTA [Concomitant]
     Active Substance: ESZOPICLONE
  7. DECADRON [Concomitant]
     Active Substance: DEXAMETHASONE
  8. METHYLPREDISOLONE [Concomitant]
     Active Substance: METHYLPREDNISOLONE
  9. ALPRAZOLAM. [Concomitant]
     Active Substance: ALPRAZOLAM
  10. FLEXERIL [Concomitant]
     Active Substance: CYCLOBENZAPRINE HYDROCHLORIDE
  11. CABOMETYX [Suspect]
     Active Substance: CABOZANTINIB S-MALATE
     Indication: PROSTATE CANCER
  12. CHOLECALCIFEROL [Concomitant]
     Active Substance: CHOLECALCIFEROL
  13. INSULIN LISPRO [Concomitant]
     Active Substance: INSULIN LISPRO
  14. RLIQIN [Concomitant]
  15. CABOMETYX [Suspect]
     Active Substance: CABOZANTINIB S-MALATE
     Indication: RENAL CANCER
     Dosage: 60 MG, QD
     Route: 048
  16. CALCIUM PHOSPHATE [Concomitant]
     Active Substance: CALCIUM PHOSPHATE
  17. FENTANYL. [Concomitant]
     Active Substance: FENTANYL
  18. LANTUS SOLOSTAR [Concomitant]
     Active Substance: INSULIN GLARGINE

REACTIONS (1)
  - Death [Fatal]

NARRATIVE: CASE EVENT DATE: 20180826
